FAERS Safety Report 4428541-1 (Version None)
Quarter: 2004Q3

REPORT INFORMATION
  Report Type: 
  Country: None (occurrence: None)
  Receive Date: 20040816
  Receipt Date: 22000802
  Transmission Date: 20050211
  Serious: Yes (Hospitalization, Other)
  Sender: FDA-Public Use
  Company Number: HQWYE505703MAR04

PATIENT
  Age: 48 Year
  Sex: Male
  Weight: 61.7 kg

DRUGS (18)
  1. RAPAMUNE [Suspect]
     Indication: PROPHYLAXIS AGAINST TRANSPLANT REJECTION
     Dosage: SEE IMAGE
     Route: 047
     Dates: start: 20031027, end: 20040101
  2. RAPAMUNE [Suspect]
     Indication: PROPHYLAXIS AGAINST TRANSPLANT REJECTION
     Dosage: SEE IMAGE
     Route: 047
     Dates: start: 20040101
  3. NEORAL [Concomitant]
  4. PREDNISONE TAB [Concomitant]
  5. NPH INSULIN [Concomitant]
  6. NPH INSULIN [Concomitant]
  7. ATENOLOL [Concomitant]
  8. MINOXIDIL [Concomitant]
  9. ISORDIL [Concomitant]
  10. PROTONIX [Concomitant]
  11. AMPICILLIN [Concomitant]
  12. EPOGEN [Concomitant]
  13. BACTRIM [Concomitant]
  14. FERROUS SULFATE TAB [Concomitant]
  15. MULTIVITAMINS (ASCORBIC ACID/ERGOCALCIFEROL/FOLIC ACID/NICOTINAMIDE/PA [Concomitant]
  16. LIPITOR [Concomitant]
  17. VASOTEC [Concomitant]
  18. NORVASC [Concomitant]

REACTIONS (17)
  - ALANINE AMINOTRANSFERASE INCREASED [None]
  - ASPARTATE AMINOTRANSFERASE INCREASED [None]
  - BLOOD ALBUMIN DECREASED [None]
  - BLOOD CHLORIDE INCREASED [None]
  - BLOOD GLUCOSE DECREASED [None]
  - BLOOD LACTATE DEHYDROGENASE INCREASED [None]
  - BLOOD POTASSIUM INCREASED [None]
  - COMPUTERISED TOMOGRAM ABNORMAL [None]
  - GLYCOPEPTIDE ANTIBIOTIC RESISTANT ENTEROCOCCAL INFECTION [None]
  - HAEMATOCRIT DECREASED [None]
  - HAEMOGLOBIN DECREASED [None]
  - INFECTED LYMPHOCELE [None]
  - KIDNEY TRANSPLANT REJECTION [None]
  - PYREXIA [None]
  - RED BLOOD CELL COUNT DECREASED [None]
  - SCROTAL HAEMATOMA [None]
  - STAPHYLOCOCCAL INFECTION [None]
